FAERS Safety Report 20709539 (Version 1)
Quarter: 2022Q2

REPORT INFORMATION
  Report Type: Spontaneous
  Country: FR (occurrence: FR)
  Receive Date: 20220414
  Receipt Date: 20220414
  Transmission Date: 20220721
  Serious: Yes (Other)
  Sender: FDA-Public Use
  Company Number: None

PATIENT
  Age: 33 Year
  Sex: Female
  Weight: 55 kg

DRUGS (2)
  1. ENTYVIO [Suspect]
     Active Substance: VEDOLIZUMAB
     Indication: Colitis
     Dosage: 108 MILLIGRAM, Q2WEEKS
     Route: 058
     Dates: start: 20211118
  2. ESOMEPRAZOLE [Concomitant]
     Active Substance: ESOMEPRAZOLE
     Dosage: UNK

REACTIONS (3)
  - Therapeutic product ineffective [Not Recovered/Not Resolved]
  - Disease recurrence [Not Recovered/Not Resolved]
  - Injection site inflammation [Recovered/Resolved]

NARRATIVE: CASE EVENT DATE: 20220101
